FAERS Safety Report 4975771-6 (Version None)
Quarter: 2006Q2

REPORT INFORMATION
  Report Type: 
  Country: None (occurrence: None)
  Receive Date: 20060411
  Receipt Date: 20060324
  Transmission Date: 20061013
  Serious: Yes (Death)
  Sender: FDA-Public Use
  Company Number: JP200602004672

PATIENT
  Age: 53 Year
  Sex: Male
  Weight: 46 kg

DRUGS (18)
  1. HUMALOG [Suspect]
     Indication: DIABETES MELLITUS
     Dosage: SEE IMAGE
     Route: 058
     Dates: end: 20051201
  2. HUMALOG [Suspect]
     Indication: DIABETES MELLITUS
     Dosage: SEE IMAGE
     Route: 058
     Dates: start: 20051201
  3. LANTUS [Concomitant]
  4. KINEDAK (EPALRESTAT) [Concomitant]
  5. NAUZELIN (DOMPERIDONE) [Concomitant]
  6. NORVASC /DEN/ (AMLODIPINE BESILATE) [Concomitant]
  7. LANSOPRAZOLE [Concomitant]
  8. BLOPRESS /GFR/ (CANDESARTAN CILEXETIL) [Concomitant]
  9. AMOBAN (ZOPICLONE) [Concomitant]
  10. ROHPINOL (FLUNITRAZEPAM) [Concomitant]
  11. LENDORM [Concomitant]
  12. DEPAS (ETIZOLAM) [Concomitant]
  13. MEXITIL [Concomitant]
  14. VITAMEDIN CAPSULE (BENFOTIAMINE, CYANOCOBALAMIN, PYRIDOXINE HYDROCHLOR [Concomitant]
  15. DORNER (BERAPROST SODIUM) [Concomitant]
  16. BIO THREE (BACTERIA NOS) [Concomitant]
  17. SIGMART (NICORANDIL) [Concomitant]
  18. POLYCARBOPHIL CALCIUM [Concomitant]

REACTIONS (3)
  - CARDIO-RESPIRATORY ARREST [None]
  - DIABETES MELLITUS INADEQUATE CONTROL [None]
  - HYPOGLYCAEMIA [None]
